APPROVED DRUG PRODUCT: DEXAMETHASONE
Active Ingredient: DEXAMETHASONE
Strength: 2MG
Dosage Form/Route: TABLET;ORAL
Application: A216295 | Product #001 | TE Code: AB
Applicant: AMNEAL EU LTD
Approved: Sep 8, 2022 | RLD: No | RS: No | Type: RX